FAERS Safety Report 9297563 (Version 1)
Quarter: 2013Q2

REPORT INFORMATION
  Report Type: Spontaneous
  Country: US (occurrence: US)
  Receive Date: 20130520
  Receipt Date: 20130520
  Transmission Date: 20140414
  Serious: Yes (Hospitalization)
  Sender: FDA-Public Use
  Company Number: US-JNJFOC-20130305821

PATIENT
  Age: 73 Year
  Sex: Male
  Weight: 115.7 kg

DRUGS (7)
  1. XARELTO [Suspect]
     Indication: CEREBROVASCULAR ACCIDENT PROPHYLAXIS
     Route: 048
     Dates: start: 201207, end: 20130318
  2. XARELTO [Suspect]
     Indication: ATRIAL FIBRILLATION
     Route: 048
     Dates: start: 201207, end: 20130318
  3. MULTAQ [Concomitant]
     Route: 065
  4. SYNTHROID [Concomitant]
     Route: 065
  5. TOPROL XL [Concomitant]
     Route: 065
  6. METOPROLOL [Concomitant]
     Route: 065
  7. PROTONIX [Concomitant]
     Route: 065

REACTIONS (4)
  - Gastrointestinal haemorrhage [Recovered/Resolved]
  - Melaena [Recovered/Resolved]
  - Haemoglobin decreased [Recovered/Resolved]
  - Inappropriate schedule of drug administration [Unknown]
